FAERS Safety Report 17930740 (Version 1)
Quarter: 2020Q2

REPORT INFORMATION
  Report Type: Report from Study
  Country: CA (occurrence: CA)
  Receive Date: 20200623
  Receipt Date: 20200623
  Transmission Date: 20200714
  Serious: Yes (Other)
  Sender: FDA-Public Use
  Company Number: CA-JNJFOC-20200326626

PATIENT
  Age: 48 Year
  Sex: Male
  Weight: 70 kg

DRUGS (1)
  1. REMICADE [Suspect]
     Active Substance: INFLIXIMAB
     Indication: CROHN^S DISEASE
     Dosage: 700 MG
     Route: 042
     Dates: start: 20060921

REACTIONS (4)
  - Vomiting [Recovered/Resolved]
  - Influenza [Recovering/Resolving]
  - Vitamin D deficiency [Unknown]
  - Enterostomy [Unknown]

NARRATIVE: CASE EVENT DATE: 202003
